FAERS Safety Report 22264692 (Version 2)
Quarter: 2023Q2

REPORT INFORMATION
  Report Type: Spontaneous
  Country: JP (occurrence: JP)
  Receive Date: 20230428
  Receipt Date: 20230516
  Transmission Date: 20230721
  Serious: Yes (Hospitalization, Other)
  Sender: FDA-Public Use
  Company Number: JP-BAYER-2023A042036

PATIENT
  Age: 31 Year
  Sex: Female

DRUGS (1)
  1. MIRENA [Suspect]
     Active Substance: LEVONORGESTREL
     Indication: Dysmenorrhoea
     Dosage: 20?G/DAY
     Route: 015
     Dates: start: 20171004, end: 20220214

REACTIONS (4)
  - Uterine perforation [Recovered/Resolved]
  - Device breakage [None]
  - Intermenstrual bleeding [None]
  - Complication of device removal [None]

NARRATIVE: CASE EVENT DATE: 20220119
